FAERS Safety Report 4455650-3 (Version None)
Quarter: 2004Q3

REPORT INFORMATION
  Report Type: 
  Country: None (occurrence: None)
  Receive Date: 20040920
  Receipt Date: 20040920
  Transmission Date: 20050211
  Serious: Yes (Other)
  Sender: FDA-Public Use
  Company Number: None

PATIENT
  Age: 46 Year
  Sex: Female
  Weight: 113.3993 kg

DRUGS (2)
  1. RANITIDINE [Suspect]
     Indication: GASTRITIS
     Dosage: 300 MG PO/CHRONIC
     Route: 048
  2. RANITIDINE [Suspect]
     Indication: GASTROOESOPHAGEAL REFLUX DISEASE
     Dosage: 300 MG PO/CHRONIC
     Route: 048

REACTIONS (3)
  - DYSPEPSIA [None]
  - GASTROOESOPHAGEAL REFLUX DISEASE [None]
  - PHARMACEUTICAL PRODUCT COMPLAINT [None]
